FAERS Safety Report 15516747 (Version 3)
Quarter: 2018Q4

REPORT INFORMATION
  Report Type: Spontaneous
  Country: US (occurrence: US)
  Receive Date: 20181017
  Receipt Date: 20181224
  Transmission Date: 20190205
  Serious: No
  Sender: FDA-Public Use
  Company Number: US-AMGEN-USASP2018144819

PATIENT
  Age: 60 Year
  Sex: Female
  Weight: 47.62 kg

DRUGS (4)
  1. AIMOVIG [Suspect]
     Active Substance: ERENUMAB-AOOE
     Indication: MIGRAINE PROPHYLAXIS
     Dosage: 70 MG, QMO
     Route: 058
     Dates: start: 20180908, end: 20180908
  2. AMITRIPTYLINE [Concomitant]
     Active Substance: AMITRIPTYLINE
     Dosage: UNK
  3. OXYGEN. [Suspect]
     Active Substance: OXYGEN
     Indication: NAUSEA
  4. OXYGEN. [Suspect]
     Active Substance: OXYGEN
     Indication: HEADACHE
     Dosage: UNK
     Route: 065
     Dates: start: 20180908

REACTIONS (3)
  - Nausea [Recovered/Resolved]
  - Headache [Recovered/Resolved]
  - Hypersensitivity [Unknown]

NARRATIVE: CASE EVENT DATE: 20180908
